FAERS Safety Report 14906247 (Version 1)
Quarter: 2018Q2

REPORT INFORMATION
  Report Type: Spontaneous
  Country: US (occurrence: US)
  Receive Date: 20180517
  Receipt Date: 20180517
  Transmission Date: 20180711
  Serious: No
  Sender: FDA-Public Use
  Company Number: US-SA-2018SA101081

PATIENT
  Age: 61 Year
  Sex: Male

DRUGS (3)
  1. SOLOSTAR [Suspect]
     Active Substance: DEVICE
     Dates: start: 2017
  2. LANTUS SOLOSTAR [Suspect]
     Active Substance: INSULIN GLARGINE
     Dosage: INCREASING 3 UNITS WEEKLY
     Route: 051
  3. LANTUS SOLOSTAR [Suspect]
     Active Substance: INSULIN GLARGINE
     Dosage: DOSE:56 UNIT(S)
     Route: 051
     Dates: start: 2017

REACTIONS (4)
  - Product storage error [Unknown]
  - Device issue [Unknown]
  - Blood glucose increased [Unknown]
  - Wrong technique in device usage process [Unknown]
